FAERS Safety Report 11452122 (Version 3)
Quarter: 2015Q4

REPORT INFORMATION
  Report Type: Report from Study
  Country: US (occurrence: US)
  Receive Date: 20150903
  Receipt Date: 20151207
  Transmission Date: 20160304
  Serious: Yes (Other)
  Sender: FDA-Public Use
  Company Number: US-AMGEN-USASP2015089657

PATIENT
  Age: 44 Year
  Sex: Female

DRUGS (2)
  1. ENBREL [Suspect]
     Active Substance: ETANERCEPT
     Indication: RHEUMATOID ARTHRITIS
     Dosage: 50 MG, QWK
     Route: 065
     Dates: start: 20150815
  2. PREDNISONE. [Concomitant]
     Active Substance: PREDNISONE
     Dosage: UNK, AS NECESSARY

REACTIONS (17)
  - Musculoskeletal discomfort [Unknown]
  - Somnolence [Unknown]
  - Fatigue [Unknown]
  - Abasia [Unknown]
  - Migraine [Unknown]
  - Depression [Unknown]
  - Bradycardia [Unknown]
  - Vomiting [Unknown]
  - Pain [Unknown]
  - Peripheral swelling [Unknown]
  - Fungal infection [Unknown]
  - Drug ineffective [Unknown]
  - Joint swelling [Unknown]
  - Nausea [Unknown]
  - Fibromyalgia [Unknown]
  - Pain in extremity [Unknown]
  - Arthralgia [Unknown]

NARRATIVE: CASE EVENT DATE: 2015
